FAERS Safety Report 4526251-3 (Version None)
Quarter: 2004Q4

REPORT INFORMATION
  Report Type: 
  Country: None (occurrence: None)
  Receive Date: 20041210
  Receipt Date: 20041126
  Transmission Date: 20050328
  Serious: Yes (Other)
  Sender: FDA-Public Use
  Company Number: SP-2004-001954

PATIENT
  Age: 69 Year
  Sex: Female
  Weight: 74 kg

DRUGS (4)
  1. OLMETEC 10 [Suspect]
     Indication: HYPERTENSION
     Dosage: 10 MG QD PO
     Route: 048
     Dates: start: 20041005, end: 20041019
  2. ASPIRIN [Concomitant]
  3. BISOPROLOL FUMARATE [Concomitant]
  4. PRAVASTATIN [Concomitant]

REACTIONS (1)
  - ANGINA PECTORIS [None]
